FAERS Safety Report 7425105-2 (Version None)
Quarter: 2011Q2

REPORT INFORMATION
  Report Type: 
  Country: None (occurrence: None)
  Receive Date: 20110420
  Receipt Date: 20110412
  Transmission Date: 20111010
  Serious: Yes (Death)
  Sender: FDA-Public Use
  Company Number: US-BIOGENIDEC-2011BI007077

PATIENT
  Sex: Female

DRUGS (2)
  1. REBIF [Concomitant]
     Indication: MULTIPLE SCLEROSIS
  2. AVONEX [Suspect]
     Indication: MULTIPLE SCLEROSIS
     Route: 030
     Dates: start: 20100509

REACTIONS (2)
  - MULTIPLE SCLEROSIS [None]
  - NEUROMYELITIS OPTICA [None]
